FAERS Safety Report 7782517-5 (Version None)
Quarter: 2011Q3

REPORT INFORMATION
  Report Type: 
  Country: None (occurrence: None)
  Receive Date: 20110928
  Receipt Date: 20110915
  Transmission Date: 20111222
  Serious: Yes (Death)
  Sender: FDA-Public Use
  Company Number: JP-ELI_LILLY_AND_COMPANY-JP201108008314

PATIENT
  Sex: Male
  Weight: 46.5 kg

DRUGS (6)
  1. CYMBALTA [Suspect]
     Indication: BIPOLAR DISORDER
     Dosage: 20 MG, QD
     Route: 048
     Dates: start: 20110720
  2. DEPROMEL [Concomitant]
     Indication: DEPRESSION
     Dosage: UNK
     Route: 048
  3. ZYPREXA [Concomitant]
     Indication: MANIA
     Dosage: UNK
     Route: 048
  4. ABILIFY [Concomitant]
     Indication: DEPRESSION
     Dosage: UNK
     Route: 048
  5. ASPIRIN [Concomitant]
     Indication: ANGINA PECTORIS
     Dosage: UNK
     Route: 048
  6. DEPAS [Concomitant]
     Indication: INSOMNIA
     Dosage: UNK
     Route: 048

REACTIONS (3)
  - HALLUCINATION, AUDITORY [None]
  - FALL [None]
  - SUBDURAL HAEMATOMA [None]
